FAERS Safety Report 5633833-4 (Version None)
Quarter: 2008Q1

REPORT INFORMATION
  Report Type: 
  Country: None (occurrence: None)
  Receive Date: 20080131
  Receipt Date: 20070927
  Transmission Date: 20080703
  Serious: No
  Sender: FDA-Public Use
  Company Number: 163-21880-07100102

PATIENT
  Age: 77 Year
  Sex: Female

DRUGS (3)
  1. REVLIMID [Suspect]
     Indication: MULTIPLE MYELOMA
     Dosage: 10 MG, QD X21 DAYS Q28D, ORAL ; 15 MG, QD X28 DAYS, ORAL
     Route: 048
     Dates: start: 20070906, end: 20070927
  2. REVLIMID [Suspect]
     Indication: MULTIPLE MYELOMA
     Dosage: 10 MG, QD X21 DAYS Q28D, ORAL ; 15 MG, QD X28 DAYS, ORAL
     Route: 048
     Dates: start: 20071001
  3. ASPIRIN [Concomitant]

REACTIONS (1)
  - FATIGUE [None]
